FAERS Safety Report 21422576 (Version 2)
Quarter: 2022Q4

REPORT INFORMATION
  Report Type: Spontaneous
  Country: AT (occurrence: AT)
  Receive Date: 20221007
  Receipt Date: 20221119
  Transmission Date: 20230112
  Serious: Yes (Life-Threatening)
  Sender: FDA-Public Use
  Company Number: None

PATIENT
  Age: 48 Year
  Sex: Female
  Weight: 70 kg

DRUGS (5)
  1. KEYTRUDA [Suspect]
     Active Substance: PEMBROLIZUMAB
     Indication: Triple negative breast cancer
     Dosage: 200 MG, IV, FIRST APPLICATION ON 08.08.2022
     Dates: start: 20220808, end: 20220808
  2. KEYTRUDA [Suspect]
     Active Substance: PEMBROLIZUMAB
     Dosage: 200 MG, IV, SECOND APPLICATION ON 29.08.2022
     Dates: start: 20220829, end: 20220829
  3. KEYTRUDA [Suspect]
     Active Substance: PEMBROLIZUMAB
     Dosage: 200 MG, IV, THIRD APPLICATION ON 19.09.2022
     Dates: start: 20220919, end: 20220919
  4. CARBOPLATIN [Concomitant]
     Active Substance: CARBOPLATIN
     Dosage: CARBOPLATIN 148 MG I.V. Q1
     Route: 042
     Dates: start: 20220808, end: 20220919
  5. PACLITAXEL [Concomitant]
     Active Substance: PACLITAXEL
     Dosage: PACLITAXEL 140MG I.V. Q1
     Route: 042
     Dates: start: 20220808, end: 20220919

REACTIONS (5)
  - Autoimmune haemolytic anaemia [Recovered/Resolved]
  - Thrombotic thrombocytopenic purpura [Recovered/Resolved]
  - Microangiopathic haemolytic anaemia [Recovered/Resolved]
  - Haemolytic uraemic syndrome [Recovered/Resolved]
  - Renal failure [Recovering/Resolving]

NARRATIVE: CASE EVENT DATE: 20220920
